FAERS Safety Report 6978984-7 (Version None)
Quarter: 2010Q3

REPORT INFORMATION
  Report Type: 
  Country: None (occurrence: None)
  Receive Date: 20100908
  Receipt Date: 20100830
  Transmission Date: 20110219
  Serious: Yes (Hospitalization, Other)
  Sender: FDA-Public Use
  Company Number: 2010US003095

PATIENT
  Age: 32 Year
  Sex: Male

DRUGS (11)
  1. PROGRAF [Suspect]
     Indication: RENAL TRANSPLANT
     Dosage: 1.5 MG, BID, ORAL
     Route: 048
     Dates: start: 20090804, end: 20091201
  2. ALLOPURINOL [Concomitant]
  3. ASCORBIC ACID [Concomitant]
  4. CALCIUM CARBONATE [Concomitant]
  5. CLINDAMYCIN HCL [Concomitant]
  6. PROCRIT [Concomitant]
  7. LASIX [Concomitant]
  8. LABETALOL HCL [Concomitant]
  9. OMEPRAZOLE [Concomitant]
  10. SEVELAMER (SEVELAMER) [Concomitant]
  11. VITAMIN E [Concomitant]

REACTIONS (11)
  - ANAEMIA [None]
  - BLOOD POTASSIUM INCREASED [None]
  - CELLULITIS [None]
  - DIALYSIS [None]
  - HEADACHE [None]
  - KIDNEY TRANSPLANT REJECTION [None]
  - MYALGIA [None]
  - PRODUCTIVE COUGH [None]
  - REFUSAL OF TREATMENT BY PATIENT [None]
  - RENAL FAILURE CHRONIC [None]
  - SMALL INTESTINAL OBSTRUCTION [None]
